FAERS Safety Report 21161123 (Version 1)
Quarter: 2022Q3

REPORT INFORMATION
  Report Type: Spontaneous
  Country: US (occurrence: None)
  Receive Date: 20220801
  Receipt Date: 20220801
  Transmission Date: 20221027
  Serious: Yes (Life-Threatening, Hospitalization)
  Sender: FDA-Public Use
  Company Number: None

PATIENT
  Age: 26 Year
  Sex: Female
  Weight: 40 kg

DRUGS (1)
  1. IRON SUCROSE [Suspect]
     Active Substance: IRON SUCROSE
     Indication: Iron deficiency anaemia
     Dosage: FREQUENCY : ONCE;?
     Route: 042
     Dates: start: 20220721, end: 20220721

REACTIONS (13)
  - Infusion related reaction [None]
  - Nausea [None]
  - Diarrhoea [None]
  - Paraesthesia [None]
  - Dizziness [None]
  - Chest pain [None]
  - Throat tightness [None]
  - Hypoxia [None]
  - Anaphylactic shock [None]
  - Hypotension [None]
  - Sinus tachycardia [None]
  - Leukocytosis [None]
  - Hypercoagulation [None]

NARRATIVE: CASE EVENT DATE: 20220721
